FAERS Safety Report 8996338 (Version 1)
Quarter: 2013Q1

REPORT INFORMATION
  Report Type: Spontaneous
  Country: GB (occurrence: GB)
  Receive Date: 20130104
  Receipt Date: 20130104
  Transmission Date: 20140127
  Serious: Yes (Hospitalization)
  Sender: FDA-Public Use
  Company Number: GB-AMGEN-GBRSP2012083740

PATIENT
  Age: 57 Year
  Sex: Male
  Weight: 80 kg

DRUGS (8)
  1. NPLATE [Suspect]
     Indication: IDIOPATHIC THROMBOCYTOPENIC PURPURA
     Dosage: 80 MUG, UNK
     Route: 058
     Dates: start: 20120926, end: 20121010
  2. ACICLOVIR [Concomitant]
  3. BORTEZOMIB [Concomitant]
  4. CHLORHEXIDINE GLUCONATE [Concomitant]
  5. CHLORPHENAMINE [Concomitant]
  6. OMEPRAZOLE [Concomitant]
  7. TRANEXAMIC ACID [Concomitant]
  8. VITAMIN K                          /00032401/ [Concomitant]

REACTIONS (5)
  - Joint swelling [Recovered/Resolved with Sequelae]
  - Joint warmth [Recovered/Resolved with Sequelae]
  - C-reactive protein increased [Unknown]
  - Red blood cell sedimentation rate increased [Unknown]
  - Arthralgia [Recovered/Resolved with Sequelae]
